FAERS Safety Report 20848821 (Version 1)
Quarter: 2022Q2

REPORT INFORMATION
  Report Type: Spontaneous
  Country: AU (occurrence: AU)
  Receive Date: 20220519
  Receipt Date: 20220519
  Transmission Date: 20220721
  Serious: Yes (Life-Threatening, Other)
  Sender: FDA-Public Use
  Company Number: AU-SA-SAC20220517000735

PATIENT
  Sex: Male

DRUGS (4)
  1. LORATADINE [Suspect]
     Active Substance: LORATADINE
     Indication: Product used for unknown indication
     Dosage: 10 MG, QD
     Dates: start: 2013
  2. CLOPIDOGREL BISULFATE [Suspect]
     Active Substance: CLOPIDOGREL BISULFATE
     Indication: Product used for unknown indication
     Dosage: 75 MG, QD
     Dates: start: 2013
  3. PREDNISONE [Concomitant]
     Active Substance: PREDNISONE
     Indication: Product used for unknown indication
     Dosage: 50 MG, QD
     Dates: start: 202006, end: 202007
  4. ASPIRIN [Concomitant]
     Active Substance: ASPIRIN
     Indication: Product used for unknown indication
     Dosage: 100 MG, QD
     Dates: start: 2013

REACTIONS (11)
  - Syncope [Unknown]
  - Pneumonia [Unknown]
  - Polycythaemia vera [Unknown]
  - Hyperhidrosis [Unknown]
  - White blood cell count increased [Unknown]
  - Pruritus [Unknown]
  - Splenomegaly [Unknown]
  - Abdominal pain [Unknown]
  - Drug intolerance [Unknown]
  - Chest pain [Unknown]
  - Drug ineffective [Unknown]
